FAERS Safety Report 7098117-9 (Version None)
Quarter: 2010Q4

REPORT INFORMATION
  Report Type: 
  Country: None (occurrence: None)
  Receive Date: 20101112
  Receipt Date: 20091216
  Transmission Date: 20110411
  Serious: No
  Sender: FDA-Public Use
  Company Number: US-KINGPHARMUSA00001-K200901560

PATIENT
  Age: 66 Year
  Sex: Male
  Weight: 77.098 kg

DRUGS (4)
  1. SKELAXIN [Suspect]
     Indication: BACK PAIN
     Dosage: 800 MG, BID
     Route: 048
     Dates: start: 20091208, end: 20091214
  2. CHOLESTEROL- AND TRIGLYCERIDE REDUCERS [Concomitant]
     Indication: BLOOD CHOLESTEROL INCREASED
     Dosage: UNK
  3. ASPIRIN [Concomitant]
     Dosage: UNK
  4. NAPRELAN [Concomitant]
     Indication: BACK PAIN
     Dosage: UNK

REACTIONS (3)
  - ABDOMINAL DISCOMFORT [None]
  - DECREASED APPETITE [None]
  - DIARRHOEA [None]
